FAERS Safety Report 25439592 (Version 2)
Quarter: 2025Q2

REPORT INFORMATION
  Report Type: Spontaneous
  Country: IT (occurrence: IT)
  Receive Date: 20250616
  Receipt Date: 20250617
  Transmission Date: 20250717
  Serious: Yes (Life-Threatening)
  Sender: UCB
  Company Number: None

PATIENT
  Age: 14 Year
  Sex: Female
  Weight: 50 kg

DRUGS (2)
  1. LEVETIRACETAM [Suspect]
     Active Substance: LEVETIRACETAM
     Indication: Epilepsy
     Route: 048
     Dates: start: 20250508, end: 20250508
  2. TEGRETOL [Suspect]
     Active Substance: CARBAMAZEPINE
     Indication: Epilepsy
     Route: 048
     Dates: start: 20250507, end: 20250507

REACTIONS (3)
  - Bradycardia [Recovered/Resolved]
  - Intentional overdose [Unknown]
  - Slow speech [Recovered/Resolved]

NARRATIVE: CASE EVENT DATE: 20250507
